FAERS Safety Report 6370858-8 (Version None)
Quarter: 2009Q3

REPORT INFORMATION
  Report Type: 
  Country: None (occurrence: None)
  Receive Date: 20090923
  Receipt Date: 20071008
  Transmission Date: 20100115
  Serious: Yes (Other)
  Sender: FDA-Public Use
  Company Number: US-ASTRAZENECA-2006UW23774

PATIENT
  Age: 41 Year
  Sex: Female
  Weight: 75.3 kg

DRUGS (15)
  1. SEROQUEL [Suspect]
     Indication: INSOMNIA
     Route: 048
     Dates: start: 19980101, end: 20070101
  2. SEROQUEL [Suspect]
     Dosage: 300MG - 450MG OR 500MG AT EVERY NIGHT
     Route: 048
     Dates: start: 20030429
  3. ABILIFY [Concomitant]
  4. ZOLOFT [Concomitant]
  5. ZOLOFT [Concomitant]
     Dosage: 50MG -150 MG, EVERY MORNING
     Route: 048
     Dates: start: 20030429
  6. PREMARIN [Concomitant]
     Indication: HYSTERECTOMY
     Dates: start: 19800101
  7. PAXIL [Concomitant]
     Indication: DEPRESSION
     Dates: start: 19980518
  8. PAXIL [Concomitant]
     Indication: ANXIETY
     Dates: start: 19980518
  9. WELLBUTRIN SR [Concomitant]
     Dates: start: 19980908
  10. TRAZODONE [Concomitant]
     Route: 048
     Dates: start: 19981102
  11. INDERAL [Concomitant]
     Dosage: 10 MG THREE TIMES A DAY OR TWO TIMES A DAY
     Route: 048
     Dates: start: 20030429
  12. KLONOPIN [Concomitant]
     Dosage: 1 MG HALF TABLET TWICE A DAY
     Route: 048
     Dates: start: 20040616
  13. ATIVAN [Concomitant]
     Dosage: 1 MG TWO TIMES A DAY AS REQUIRED
     Route: 048
     Dates: start: 19980518
  14. AMITRIPTYLINE [Concomitant]
     Dates: start: 19971219
  15. NEURONTIN [Concomitant]
     Indication: NEUROPATHY PERIPHERAL
     Dates: start: 19980518

REACTIONS (2)
  - PANCREATITIS [None]
  - PANCREATITIS ACUTE [None]
